FAERS Safety Report 24210427 (Version 1)
Quarter: 2024Q3

REPORT INFORMATION
  Report Type: Spontaneous
  Country: US (occurrence: US)
  Receive Date: 20240814
  Receipt Date: 20240814
  Transmission Date: 20241016
  Serious: Yes (Hospitalization, Other)
  Sender: GLAND PHARMA
  Company Number: US-GLANDPHARMA-US-2024GLNLIT00603

PATIENT
  Age: 64 Year
  Sex: Male

DRUGS (2)
  1. LACOSAMIDE [Suspect]
     Active Substance: LACOSAMIDE
     Indication: Seizure
     Route: 065
  2. LACOSAMIDE [Suspect]
     Active Substance: LACOSAMIDE
     Route: 065

REACTIONS (4)
  - Atrioventricular block complete [Recovering/Resolving]
  - Bundle branch block right [Recovering/Resolving]
  - Bundle branch block left [Recovering/Resolving]
  - Atrioventricular block first degree [Recovering/Resolving]
